APPROVED DRUG PRODUCT: RENOTEC
Active Ingredient: TECHNETIUM TC-99M FERPENTETATE KIT
Strength: N/A
Dosage Form/Route: INJECTABLE;INJECTION
Application: N017045 | Product #001
Applicant: BRACCO DIAGNOSTICS INC
Approved: Approved Prior to Jan 1, 1982 | RLD: No | RS: No | Type: DISCN